FAERS Safety Report 4447084-2 (Version None)
Quarter: 2004Q3

REPORT INFORMATION
  Report Type: 
  Country: None (occurrence: None)
  Receive Date: 20040813
  Receipt Date: 20040512
  Transmission Date: 20050211
  Serious: No
  Sender: FDA-Public Use
  Company Number: S04-USA-03578-01

PATIENT
  Age: 86 Year
  Sex: Male

DRUGS (9)
  1. NAMENDA [Suspect]
     Indication: DEMENTIA
     Dosage: 10 MG QD PO
     Route: 048
     Dates: start: 20040425, end: 20040501
  2. NAMENDA [Suspect]
     Indication: DEMENTIA
     Dosage: 15 MG QD PO
     Route: 048
     Dates: start: 20040502, end: 20040508
  3. NAMENDA [Suspect]
     Indication: DEMENTIA
     Dosage: 20 MG QD PO
     Route: 048
     Dates: start: 20040509
  4. NAMENDA [Suspect]
     Indication: DEMENTIA
     Dosage: 5 MG QD PO
     Route: 048
     Dates: start: 20040418, end: 20040424
  5. PACERONE [Concomitant]
  6. CELEXA [Concomitant]
  7. EXELON [Concomitant]
  8. DETROL [Concomitant]
  9. MULTIVITAMIN [Concomitant]

REACTIONS (2)
  - CONSTIPATION [None]
  - SOMNOLENCE [None]
